FAERS Safety Report 4710769-4 (Version None)
Quarter: 2005Q3

REPORT INFORMATION
  Report Type: 
  Country: None (occurrence: None)
  Receive Date: 20050706
  Receipt Date: 20050706
  Transmission Date: 20060218
  Serious: Yes (Other)
  Sender: FDA-Public Use
  Company Number: None

PATIENT
  Sex: Female
  Weight: 110.5 kg

DRUGS (4)
  1. ZYLOPRIM [Suspect]
     Indication: BURKITT'S LYMPHOMA
     Dosage: 300 MG PO QD FOR 14 DAYS
     Route: 048
     Dates: start: 20050128
  2. ZYLOPRIM [Suspect]
     Indication: LEUKAEMIA
     Dosage: 300 MG PO QD FOR 14 DAYS
     Route: 048
     Dates: start: 20050128
  3. CYCLOPHOSPHAMIDE [Suspect]
     Dosage: 200 MG/M2 IV OVER 5-15 MIN QD ON DAYS 1-5
  4. PREDNISONE [Suspect]
     Dosage: 60 MG/M2 PO QD ON DAYS 1-7
     Route: 048

REACTIONS (1)
  - BLOOD CREATINE INCREASED [None]
